FAERS Safety Report 5011604-X (Version None)
Quarter: 2006Q2

REPORT INFORMATION
  Report Type: 
  Country: None (occurrence: None)
  Receive Date: 20060404
  Receipt Date: 20060117
  Transmission Date: 20061013
  Serious: No
  Sender: FDA-Public Use
  Company Number: US200601002837

PATIENT
  Age: 62 Year
  Sex: Female

DRUGS (8)
  1. CYMBALTA [Suspect]
     Indication: DEPRESSION
     Dosage: SEE IMAGE
     Dates: start: 20050101, end: 20051201
  2. CYMBALTA [Suspect]
     Indication: DEPRESSION
     Dosage: SEE IMAGE
     Dates: start: 20051201
  3. GLIPIZIDE [Concomitant]
  4. KLONOPIN [Concomitant]
  5. POLARAMINE /SWE/ (DEXCHLORPHENIRAMINE MALEATE) [Concomitant]
  6. LISINOPRIL [Concomitant]
  7. ASA TABS (ACETYLSALICYLIC ACID) [Concomitant]
  8. EVISTA [Concomitant]

REACTIONS (4)
  - CONFUSIONAL STATE [None]
  - HYPERHIDROSIS [None]
  - TINNITUS [None]
  - VERTIGO [None]
